FAERS Safety Report 14105174 (Version 1)
Quarter: 2017Q4

REPORT INFORMATION
  Report Type: Spontaneous
  Country: DE (occurrence: DE)
  Receive Date: 20171018
  Receipt Date: 20171018
  Transmission Date: 20180321
  Serious: Yes (Other)
  Sender: FDA-Public Use
  Company Number: DE-BAUSCH-BL-2017-028980

PATIENT
  Sex: Female

DRUGS (2)
  1. FLOXAL [Suspect]
     Active Substance: OFLOXACIN
     Indication: BLEPHARITIS
     Route: 061
     Dates: start: 201707, end: 2017
  2. FLOXAL [Suspect]
     Active Substance: OFLOXACIN
     Indication: HORDEOLUM

REACTIONS (3)
  - Lacrimation increased [Not Recovered/Not Resolved]
  - Visual field defect [Not Recovered/Not Resolved]
  - Eye pain [Not Recovered/Not Resolved]

NARRATIVE: CASE EVENT DATE: 201709
